FAERS Safety Report 8096330-5 (Version None)
Quarter: 2012Q1

REPORT INFORMATION
  Report Type: 
  Country: None (occurrence: None)
  Receive Date: 20120129
  Receipt Date: 20111231
  Transmission Date: 20120608
  Serious: No
  Sender: FDA-Public Use
  Company Number: US-ABBOTT-12P-163-0888855-00

PATIENT
  Age: 45 Year
  Sex: Female

DRUGS (6)
  1. MULTIVITAMIN [Concomitant]
     Indication: PRODUCT USED FOR UNKNOWN INDICATION
     Dosage: DAILY
  2. BUDESOMIDE [Concomitant]
     Indication: INFLAMMATION
  3. HUMIRA [Suspect]
     Indication: CROHN'S DISEASE
     Dosage: INITIAL DOSE OVER TWO DAY PERIOD
     Dates: start: 20111230
  4. IMURAN [Concomitant]
     Indication: CROHN'S DISEASE
  5. AUGMENTIN '125' [Concomitant]
     Indication: FISTULA
  6. CALCIUM+VIT D [Concomitant]
     Indication: MINERAL SUPPLEMENTATION

REACTIONS (2)
  - RASH PRURITIC [None]
  - RASH ERYTHEMATOUS [None]
